FAERS Safety Report 19009128 (Version 1)
Quarter: 2021Q1

REPORT INFORMATION
  Report Type: Spontaneous
  Country: US (occurrence: US)
  Receive Date: 20210315
  Receipt Date: 20210315
  Transmission Date: 20210420
  Serious: Yes (Other)
  Sender: FDA-Public Use
  Company Number: US-ASTRAZENECA-2021A132098

PATIENT
  Sex: Male
  Weight: 68 kg

DRUGS (4)
  1. FASENRA [Suspect]
     Active Substance: BENRALIZUMAB
     Indication: HYPERSENSITIVITY
     Route: 058
  2. FASENRA [Suspect]
     Active Substance: BENRALIZUMAB
     Indication: EOSINOPHIL COUNT INCREASED
     Route: 058
  3. CLARITIN [Concomitant]
     Active Substance: LORATADINE
     Indication: ANAPHYLACTIC REACTION
  4. FASENRA [Suspect]
     Active Substance: BENRALIZUMAB
     Indication: GASTROINTESTINAL DISORDER
     Route: 058

REACTIONS (9)
  - Throat tightness [Recovered/Resolved]
  - Myalgia [Recovered/Resolved]
  - Influenza like illness [Recovered/Resolved]
  - Feeling cold [Recovered/Resolved]
  - Muscular weakness [Recovered/Resolved]
  - Anaphylactic reaction [Recovered/Resolved]
  - Off label use [Recovered/Resolved]
  - Hot flush [Recovered/Resolved]
  - Fatigue [Recovered/Resolved]
